APPROVED DRUG PRODUCT: EDARBI
Active Ingredient: AZILSARTAN KAMEDOXOMIL
Strength: EQ 80MG MEDOXOMIL
Dosage Form/Route: TABLET;ORAL
Application: N200796 | Product #002
Applicant: AZURITY PHARMACEUTICALS INC
Approved: Feb 25, 2011 | RLD: Yes | RS: Yes | Type: RX

PATENTS:
Patent 9066936 | Expires: Mar 26, 2028